FAERS Safety Report 14928956 (Version 1)
Quarter: 2018Q2

REPORT INFORMATION
  Report Type: Spontaneous
  Country: US (occurrence: US)
  Receive Date: 20180504
  Receipt Date: 20180504
  Transmission Date: 20180711
  Serious: No
  Sender: FDA-Public Use
  Company Number: None

PATIENT
  Age: 64 Year
  Sex: Female

DRUGS (1)
  1. COMBIPATCH [Suspect]
     Active Substance: ESTRADIOL\NORETHINDRONE ACETATE
     Indication: MENOPAUSAL SYMPTOMS
     Dosage: ?          OTHER FREQUENCY:TWICE A WEEK;?
     Route: 061
     Dates: start: 20171215, end: 20171230

REACTIONS (4)
  - Abdominal pain [None]
  - Application site erythema [None]
  - Vaginal haemorrhage [None]
  - Application site pruritus [None]

NARRATIVE: CASE EVENT DATE: 20171230
